FAERS Safety Report 6110079-7 (Version None)
Quarter: 2009Q1

REPORT INFORMATION
  Report Type: 
  Country: None (occurrence: None)
  Receive Date: 20090310
  Receipt Date: 20090302
  Transmission Date: 20090719
  Serious: Yes (Hospitalization)
  Sender: FDA-Public Use
  Company Number: US-ABBOTT-09P-163-0560097-00

PATIENT
  Sex: Female
  Weight: 66.284 kg

DRUGS (6)
  1. SYNTHROID [Suspect]
     Indication: HYPOTHYROIDISM
     Dates: start: 20080701, end: 20080901
  2. SYNTHROID [Suspect]
     Dates: start: 19980101, end: 20080701
  3. SYNTHROID [Suspect]
     Dosage: 1.5 IN ONE DAY
     Dates: start: 20080901
  4. COZAAR [Concomitant]
     Indication: DRUG USE FOR UNKNOWN INDICATION
  5. CRESTOR [Concomitant]
     Indication: DRUG USE FOR UNKNOWN INDICATION
  6. ASPIRIN [Concomitant]
     Indication: DRUG USE FOR UNKNOWN INDICATION

REACTIONS (6)
  - ALOPECIA [None]
  - ARTHRALGIA [None]
  - BURSITIS [None]
  - NAUSEA [None]
  - SCIATICA [None]
  - VOMITING [None]
